FAERS Safety Report 4945579-6 (Version None)
Quarter: 2006Q1

REPORT INFORMATION
  Report Type: 
  Country: None (occurrence: None)
  Receive Date: 20060316
  Receipt Date: 20060208
  Transmission Date: 20060701
  Serious: No
  Sender: FDA-Public Use
  Company Number: US-JNJFOC-20060202816

PATIENT
  Sex: Female
  Weight: 63.5 kg

DRUGS (12)
  1. FENTANYL [Suspect]
     Route: 062
  2. ULTRAM [Concomitant]
     Indication: DRUG USE FOR UNKNOWN INDICATION
     Route: 048
  3. ULTRACET [Concomitant]
     Indication: DRUG USE FOR UNKNOWN INDICATION
     Route: 048
  4. DARVOCET [Concomitant]
     Route: 048
  5. DARVOCET [Concomitant]
     Indication: PAIN
     Dosage: 100 MG, AS NECESSARY, ORAL
     Route: 048
  6. ZESTRIL [Concomitant]
     Route: 048
  7. ALAVERT [Concomitant]
     Route: 048
  8. LEXAPRO [Concomitant]
     Route: 048
  9. TRAZODONE [Concomitant]
     Indication: SLEEP DISORDER
     Dosage: 200 MG AT BEDTIME
     Route: 048
  10. SEROQUEL [Concomitant]
     Indication: SLEEP DISORDER
     Route: 048
  11. DILANTIN [Concomitant]
     Route: 048
  12. ATIVAN [Concomitant]
     Route: 048

REACTIONS (2)
  - DYSARTHRIA [None]
  - FEELING ABNORMAL [None]
